FAERS Safety Report 15376916 (Version 2)
Quarter: 2018Q4

REPORT INFORMATION
  Report Type: Report from Study
  Country: PL (occurrence: PL)
  Receive Date: 20180913
  Receipt Date: 20181004
  Transmission Date: 20190204
  Serious: Yes (Other)
  Sender: FDA-Public Use
  Company Number: PL-REGENERON PHARMACEUTICALS, INC.-2018-36957

PATIENT

DRUGS (9)
  1. EYLEA [Suspect]
     Active Substance: AFLIBERCEPT
     Indication: NEOVASCULAR AGE-RELATED MACULAR DEGENERATION
     Dosage: 2 MG, FIRST INJECTION (OD), TOTAL OF 9 INJECTIONS RECEIVED
     Route: 031
     Dates: start: 20160901, end: 20160901
  2. EYLEA [Suspect]
     Active Substance: AFLIBERCEPT
     Dosage: 2 MG, SECOND INJECTION (OD)
     Route: 031
     Dates: start: 20161003, end: 20161003
  3. EYLEA [Suspect]
     Active Substance: AFLIBERCEPT
     Dosage: 2 MG, FOURTH INJECTION (OD)
     Route: 031
     Dates: start: 20170109, end: 20170109
  4. EYLEA [Suspect]
     Active Substance: AFLIBERCEPT
     Dosage: 2 MG, SEVENTH INJECTION (OD)
     Route: 031
     Dates: start: 20170706, end: 20170706
  5. EYLEA [Suspect]
     Active Substance: AFLIBERCEPT
     Dosage: 2 MG, EIGHT INJECTION (OD)
     Route: 031
     Dates: start: 20180131, end: 20180131
  6. EYLEA [Suspect]
     Active Substance: AFLIBERCEPT
     Dosage: 2 MG, FIFTH INJECTION (OD)
     Route: 031
     Dates: start: 20170308, end: 20170308
  7. EYLEA [Suspect]
     Active Substance: AFLIBERCEPT
     Dosage: 2 MG, THIRD INJECTION (OD)
     Route: 031
     Dates: start: 20161110, end: 20161110
  8. EYLEA [Suspect]
     Active Substance: AFLIBERCEPT
     Dosage: 2 MG, SIXTH INJECTION (OD)
     Route: 031
     Dates: start: 20170505, end: 20170505
  9. EYLEA [Suspect]
     Active Substance: AFLIBERCEPT
     Dosage: 2 MG, NINTH INJECTION (OD)
     Route: 031
     Dates: start: 20180326

REACTIONS (4)
  - Visual impairment [Not Recovered/Not Resolved]
  - Visual impairment [Not Recovered/Not Resolved]
  - Macular scar [Not Recovered/Not Resolved]
  - Drug ineffective [Unknown]

NARRATIVE: CASE EVENT DATE: 201712
